FAERS Safety Report 5302075-4 (Version None)
Quarter: 2007Q2

REPORT INFORMATION
  Report Type: 
  Country: None (occurrence: None)
  Receive Date: 20070419
  Receipt Date: 20070413
  Transmission Date: 20071010
  Serious: Yes (Other)
  Sender: FDA-Public Use
  Company Number: US-GLAXOSMITHKLINE-A0642108A

PATIENT
  Age: 81 Year
  Sex: Female

DRUGS (6)
  1. ADVAIR DISKUS 100/50 [Suspect]
     Indication: ASTHMA
     Route: 055
  2. MICARDIS [Concomitant]
  3. INHALER [Concomitant]
  4. TUMS [Concomitant]
  5. LISINOPRIL [Concomitant]
     Dosage: 2.5MG PER DAY
  6. SEREVENT [Concomitant]

REACTIONS (2)
  - BLOOD PRESSURE INCREASED [None]
  - COUGH [None]
